FAERS Safety Report 7948012-5 (Version None)
Quarter: 2011Q4

REPORT INFORMATION
  Report Type: 
  Country: None (occurrence: None)
  Receive Date: 20111130
  Receipt Date: 20111117
  Transmission Date: 20120403
  Serious: Yes (Other)
  Sender: FDA-Public Use
  Company Number: CN-RANBAXY-2011RR-50537

PATIENT
  Age: 12 Year
  Sex: Female

DRUGS (1)
  1. CEPHALEXIN [Suspect]
     Indication: PHARYNGITIS
     Dosage: UNK
     Route: 065

REACTIONS (1)
  - PEMPHIGUS [None]
